FAERS Safety Report 10909538 (Version 1)
Quarter: 2015Q1

REPORT INFORMATION
  Report Type: Spontaneous
  Country: US (occurrence: US)
  Receive Date: 20150312
  Receipt Date: 20150312
  Transmission Date: 20150721
  Serious: No
  Sender: FDA-Public Use
  Company Number: US-SA-2014SA058242

PATIENT
  Age: 56 Year
  Sex: Male
  Weight: 113 kg

DRUGS (1)
  1. NASACORT ALLERGY 24HR [Suspect]
     Active Substance: TRIAMCINOLONE ACETONIDE
     Indication: HYPERSENSITIVITY
     Dosage: 2-3 SPRAYS IN EACH NOSTRI ONCE A DAY?PRODUCT START E 3 MONTHS AGO
     Route: 065
     Dates: start: 20140101

REACTIONS (1)
  - Rhinorrhoea [Not Recovered/Not Resolved]
